FAERS Safety Report 8845901 (Version 1)
Quarter: 2012Q4

REPORT INFORMATION
  Report Type: 
  Country: CN (occurrence: CN)
  Receive Date: 20121017
  Receipt Date: 20121017
  Transmission Date: 20130627
  Serious: Yes (Death, Life-Threatening)
  Sender: FDA-Public Use
  Company Number: CN-ABBOTT-12P-035-0996393-00

PATIENT
  Age: 66 Year
  Sex: Male

DRUGS (2)
  1. DEPAKINE [Suspect]
     Indication: POSTOPERATIVE CARE
     Route: 042
     Dates: start: 20120709, end: 20120710
  2. NICARDIPINE HYDROCHLORIDE [Concomitant]
     Indication: PRODUCT USED FOR UNKNOWN INDICATION
     Dates: start: 20120710, end: 20120710

REACTIONS (6)
  - Cerebellar haemorrhage [Fatal]
  - Altered state of consciousness [Unknown]
  - Condition aggravated [Unknown]
  - Nervous system disorder [Unknown]
  - Respiratory disorder [Unknown]
  - Cardiac disorder [Unknown]
